FAERS Safety Report 17818301 (Version 1)
Quarter: 2020Q2

REPORT INFORMATION
  Report Type: Spontaneous
  Country: US (occurrence: US)
  Receive Date: 20200522
  Receipt Date: 20200522
  Transmission Date: 20200714
  Serious: Yes (Hospitalization, Other)
  Sender: FDA-Public Use
  Company Number: US-NAPPMUNDI-USA-2020-0153343

PATIENT
  Age: 52 Year
  Sex: Male

DRUGS (4)
  1. OXYCONTIN [Suspect]
     Active Substance: OXYCODONE HYDROCHLORIDE
     Indication: PAIN
     Dosage: 2 X 80 MG, BID
     Route: 048
  2. OXYCONTIN [Suspect]
     Active Substance: OXYCODONE HYDROCHLORIDE
     Dosage: 2 X 30 MG, BID
     Route: 048
     Dates: end: 202001
  3. METHADONE [Suspect]
     Active Substance: METHADONE HYDROCHLORIDE
     Indication: PAIN
     Dosage: 5 TABLET, 5/DAY
     Route: 048
     Dates: start: 201912, end: 202002
  4. OXYCONTIN [Suspect]
     Active Substance: OXYCODONE HYDROCHLORIDE
     Dosage: 2 X 60 MG, BID
     Route: 048

REACTIONS (9)
  - Accidental overdose [Unknown]
  - Antisocial behaviour [Unknown]
  - Somnolence [Unknown]
  - Quality of life decreased [Unknown]
  - Face injury [Unknown]
  - Injection site pain [Unknown]
  - Delirium [Unknown]
  - Product prescribing issue [Recovered/Resolved]
  - Euphoric mood [Unknown]

NARRATIVE: CASE EVENT DATE: 201912
